FAERS Safety Report 4999805-8 (Version None)
Quarter: 2006Q2

REPORT INFORMATION
  Report Type: 
  Country: None (occurrence: None)
  Receive Date: 20060511
  Receipt Date: 20060504
  Transmission Date: 20061013
  Serious: Yes (Hospitalization)
  Sender: FDA-Public Use
  Company Number: FR-SANOFI-SYNTHELABO-A02200601181

PATIENT
  Age: 73 Year
  Sex: Male
  Weight: 68 kg

DRUGS (12)
  1. ELOXATIN [Suspect]
     Indication: OESOPHAGEAL ADENOCARCINOMA METASTATIC
     Route: 042
     Dates: start: 20060328, end: 20060328
  2. TOMUDEX [Suspect]
     Indication: OESOPHAGEAL ADENOCARCINOMA METASTATIC
     Route: 042
     Dates: start: 20060328, end: 20060328
  3. KYTRIL [Suspect]
     Indication: DRUG USE FOR UNKNOWN INDICATION
     Route: 048
     Dates: start: 20060328, end: 20060331
  4. MOPRAL [Concomitant]
     Indication: DRUG USE FOR UNKNOWN INDICATION
     Route: 065
  5. LEXOMIL [Concomitant]
     Dosage: UNK
     Route: 048
  6. LASILIX [Concomitant]
     Indication: DRUG USE FOR UNKNOWN INDICATION
     Dosage: UNK
     Route: 065
  7. CELECTOL [Concomitant]
     Dosage: UNK
     Route: 048
  8. TRIATEC [Concomitant]
     Indication: DRUG USE FOR UNKNOWN INDICATION
     Dosage: UNK
     Route: 048
  9. ASPIRIN [Concomitant]
     Dosage: UNK
     Route: 065
  10. PLAVIX [Concomitant]
     Indication: DRUG USE FOR UNKNOWN INDICATION
     Dosage: UNK
     Route: 048
  11. PAROXETINE HYDROCHLORIDE [Concomitant]
     Dosage: UNK
     Route: 048
     Dates: start: 20060117, end: 20060216
  12. MOTILIUM [Concomitant]
     Indication: DRUG USE FOR UNKNOWN INDICATION
     Dosage: UNK
     Route: 048
     Dates: start: 20060115

REACTIONS (5)
  - ASTHENIA [None]
  - MUSCULOSKELETAL STIFFNESS [None]
  - MYOCARDIAL ISCHAEMIA [None]
  - SOMNOLENCE [None]
  - TREMOR [None]
